FAERS Safety Report 4676610-3 (Version None)
Quarter: 2005Q2

REPORT INFORMATION
  Report Type: 
  Country: None (occurrence: None)
  Receive Date: 20050526
  Receipt Date: 20050513
  Transmission Date: 20051028
  Serious: Yes (Other)
  Sender: FDA-Public Use
  Company Number: 2005075498

PATIENT
  Sex: Female
  Weight: 64.4108 kg

DRUGS (7)
  1. CELEBREX [Suspect]
     Indication: ARTHRITIS
     Dosage: 200 MG (200 MG, 1 IN 1 D), ORAL
     Route: 048
  2. VICODIN [Suspect]
     Indication: SCIATICA
     Dosage: ORAL
     Route: 048
  3. PRAVACHOL [Concomitant]
  4. FOSAMAX [Concomitant]
  5. MONTELUKAST SODIUM (MONTELUKAST SODIUM) [Concomitant]
  6. LIBRAX [Concomitant]
  7. ZOLOFT [Concomitant]

REACTIONS (10)
  - ABDOMINAL PAIN [None]
  - ANOREXIA [None]
  - BACK DISORDER [None]
  - BRADYPHRENIA [None]
  - GASTROINTESTINAL DISORDER [None]
  - NERVE INJURY [None]
  - POST PROCEDURAL COMPLICATION [None]
  - SCIATICA [None]
  - WEIGHT DECREASED [None]
  - WEIGHT INCREASED [None]
